FAERS Safety Report 9003110 (Version 2)
Quarter: 2013Q2

REPORT INFORMATION
  Report Type: Report from Study
  Country: CA (occurrence: CA)
  Receive Date: 20130108
  Receipt Date: 20130624
  Transmission Date: 20140414
  Serious: Yes (Death, Other)
  Sender: FDA-Public Use
  Company Number: CA-ROCHE-1177393

PATIENT
  Sex: Male
  Weight: 92.5 kg

DRUGS (5)
  1. AVASTIN [Suspect]
     Indication: GLIOBLASTOMA
     Route: 042
     Dates: start: 20121109, end: 20121221
  2. DEXAMETHASONE [Concomitant]
  3. RANITIDINE [Concomitant]
  4. KEPPRA [Concomitant]
  5. CARBAMAZEPINE [Concomitant]

REACTIONS (2)
  - General physical health deterioration [Unknown]
  - Death [Fatal]
